FAERS Safety Report 6238583-1 (Version None)
Quarter: 2009Q2

REPORT INFORMATION
  Report Type: 
  Country: None (occurrence: None)
  Receive Date: 20090622
  Receipt Date: 20090609
  Transmission Date: 20091009
  Serious: Yes (Other)
  Sender: FDA-Public Use
  Company Number: JP-ELI_LILLY_AND_COMPANY-JP200906002809

PATIENT

DRUGS (4)
  1. HUMALOG [Suspect]
     Dosage: 16 IU, EACH MORNING
     Route: 064
     Dates: start: 20060817, end: 20061207
  2. HUMALOG [Suspect]
     Dosage: 16 IU, DAILY (1/D)
     Route: 064
     Dates: start: 20060817, end: 20061207
  3. HUMALOG [Suspect]
     Dosage: 17 IU, EACH EVENING
     Route: 064
     Dates: start: 20060817, end: 20061207
  4. NOVOLIN N [Concomitant]
     Dosage: 17 IU, EACH EVENING
     Route: 064
     Dates: start: 20060817, end: 20061207

REACTIONS (5)
  - CAESAREAN SECTION [None]
  - DRUG EXPOSURE DURING PREGNANCY [None]
  - PLACENTAL TRANSFUSION SYNDROME [None]
  - PREMATURE BABY [None]
  - TWIN PREGNANCY [None]
